FAERS Safety Report 16577831 (Version 1)
Quarter: 2019Q3

REPORT INFORMATION
  Report Type: Spontaneous
  Country: US (occurrence: US)
  Receive Date: 20190716
  Receipt Date: 20190716
  Transmission Date: 20191004
  Serious: Yes (Life-Threatening, Hospitalization, Disabling, Other)
  Sender: FDA-Public Use
  Company Number: US-SA-2019SA167547

PATIENT
  Age: 36 Year
  Sex: Female

DRUGS (2)
  1. LEMTRADA [Suspect]
     Active Substance: ALEMTUZUMAB
     Dosage: UNK, UNK
     Route: 065
     Dates: start: 20180612, end: 20180614
  2. LEMTRADA [Suspect]
     Active Substance: ALEMTUZUMAB
     Indication: MULTIPLE SCLEROSIS
     Dosage: UNK, UNK
     Route: 065
     Dates: start: 20160919, end: 20160923

REACTIONS (4)
  - Infection [Unknown]
  - Expanded disability status scale score increased [Unknown]
  - Lymphopenia [Unknown]
  - Condition aggravated [Unknown]
